FAERS Safety Report 12009553 (Version 1)
Quarter: 2016Q1

REPORT INFORMATION
  Report Type: Spontaneous
  Country: US (occurrence: US)
  Receive Date: 20160205
  Receipt Date: 20160205
  Transmission Date: 20160526
  Serious: Yes (Other)
  Sender: FDA-Public Use
  Company Number: US-CIPLA LTD.-2016US00774

PATIENT

DRUGS (4)
  1. FULVESTRANT [Suspect]
     Active Substance: FULVESTRANT
     Indication: OESTROGEN RECEPTOR POSITIVE BREAST CANCER
     Dosage: 500 MG, ADMINISTERED MONTHLY FOLLOWING A LOADING DOSE OF 500 MG ON DAYS 1 AND 15 DURING CYCLE 1
     Route: 065
  2. PREDNISONE. [Suspect]
     Active Substance: PREDNISONE
     Indication: PROPHYLAXIS
     Dosage: 20 MG, QD FOR THREE DAYS ON THE DAY BEFORE, THE DAY OF, AND THE DAY AFTER EACH MK-2206
     Route: 048
  3. MK-2206 [Suspect]
     Active Substance: INVESTIGATIONAL PRODUCT
     Indication: OESTROGEN RECEPTOR POSITIVE BREAST CANCER
     Dosage: 100 OR 150 OR 200 MG WEEKLY
     Route: 048
  4. ANASTROZOLE. [Suspect]
     Active Substance: ANASTROZOLE
     Indication: OESTROGEN RECEPTOR POSITIVE BREAST CANCER
     Dosage: 1 MG, QD
     Route: 048

REACTIONS (1)
  - Lymphocyte count decreased [Unknown]
